FAERS Safety Report 4801144-2 (Version None)
Quarter: 2005Q4

REPORT INFORMATION
  Report Type: 
  Country: None (occurrence: None)
  Receive Date: 20051017
  Receipt Date: 20051006
  Transmission Date: 20060501
  Serious: Yes (Hospitalization, Other)
  Sender: FDA-Public Use
  Company Number: US-AMGEN-US153419

PATIENT
  Sex: Male

DRUGS (2)
  1. ENBREL [Suspect]
     Indication: RHEUMATOID ARTHRITIS
     Dates: start: 20020101, end: 20030101
  2. METHOTREXATE [Concomitant]

REACTIONS (4)
  - CHOLECYSTITIS [None]
  - HEPATOTOXICITY [None]
  - HERPES ZOSTER [None]
  - PANCYTOPENIA [None]
